FAERS Safety Report 6713366-4 (Version None)
Quarter: 2010Q2

REPORT INFORMATION
  Report Type: 
  Country: None (occurrence: None)
  Receive Date: 20100503
  Receipt Date: 20100419
  Transmission Date: 20101027
  Serious: Yes (Life-Threatening)
  Sender: FDA-Public Use
  Company Number: 2010AP000809

PATIENT
  Age: 86 Year
  Sex: Male

DRUGS (5)
  1. AMLODIPINE BESYLATE [Suspect]
     Dosage: 5 MG;PO;QD
     Route: 048
     Dates: start: 20091127, end: 20100324
  2. ASPIRIN [Concomitant]
  3. ATENOLOL [Concomitant]
  4. COD LIVER OIL FORTIFIED TAB [Concomitant]
  5. ISOSORBIDE MONONITRATE [Concomitant]

REACTIONS (1)
  - SWOLLEN TONGUE [None]
